FAERS Safety Report 4276254-1 (Version None)
Quarter: 2004Q1

REPORT INFORMATION
  Report Type: 
  Country: None (occurrence: None)
  Receive Date: 20040121
  Receipt Date: 20031215
  Transmission Date: 20041129
  Serious: No
  Sender: FDA-Public Use
  Company Number: US-GLAXOSMITHKLINE-A0443184A

PATIENT
  Age: 57 Year
  Sex: Male

DRUGS (4)
  1. VENTOLIN [Suspect]
     Indication: ASTHMA
     Dosage: 2PUFF UNKNOWN
     Route: 055
     Dates: start: 20031214
  2. PROVENTIL [Concomitant]
     Route: 048
  3. THEOPHYLLINE [Concomitant]
  4. ZESTRIL [Concomitant]

REACTIONS (2)
  - DYSPNOEA [None]
  - WHEEZING [None]
